FAERS Safety Report 8193927-9 (Version None)
Quarter: 2012Q1

REPORT INFORMATION
  Report Type: 
  Country: None (occurrence: None)
  Receive Date: 20120308
  Receipt Date: 20120229
  Transmission Date: 20120608
  Serious: Yes (Hospitalization)
  Sender: FDA-Public Use
  Company Number: FR-UCBSA-052521

PATIENT
  Age: 85 Year
  Sex: Female

DRUGS (9)
  1. CRESTOR [Concomitant]
  2. METEOSPASMYL [Concomitant]
  3. MIRTAZAPINE [Concomitant]
  4. EXELON [Concomitant]
  5. URBANYL [Concomitant]
     Dates: start: 20110101, end: 20120101
  6. OXAZEPAM [Concomitant]
  7. KEPPRA [Suspect]
     Indication: GRAND MAL CONVULSION
     Route: 048
     Dates: start: 20111031
  8. IRBESARTAN [Concomitant]
  9. ACETAMINOPHEN AND TRAMADOL HCL [Concomitant]
     Dates: end: 20120101

REACTIONS (9)
  - DISORIENTATION [None]
  - NIGHTMARE [None]
  - DEPRESSED MOOD [None]
  - HYPERSOMNIA [None]
  - VENOUS INSUFFICIENCY [None]
  - OEDEMA PERIPHERAL [None]
  - LOGORRHOEA [None]
  - EUPHORIC MOOD [None]
  - MORBID THOUGHTS [None]
